FAERS Safety Report 14940971 (Version 2)
Quarter: 2018Q3

REPORT INFORMATION
  Report Type: Spontaneous
  Country: US (occurrence: US)
  Receive Date: 20180525
  Receipt Date: 20180809
  Transmission Date: 20181010
  Serious: Yes (Hospitalization)
  Sender: FDA-Public Use
  Company Number: US-PFIZER INC-2017503650

PATIENT
  Age: 59 Year
  Sex: Female
  Weight: 82.86 kg

DRUGS (1)
  1. PRISTIQ EXTENDED?RELEASE [Suspect]
     Active Substance: DESVENLAFAXINE SUCCINATE
     Indication: BIPOLAR DISORDER
     Dosage: 50 MG, 1X/DAY (ONCE DAILY AT NIGHT TIME)
     Route: 048
     Dates: end: 201802

REACTIONS (3)
  - Product use in unapproved indication [Unknown]
  - Brain neoplasm [Recovered/Resolved with Sequelae]
  - Abnormal behaviour [Unknown]

NARRATIVE: CASE EVENT DATE: 20151225
